FAERS Safety Report 8309647-3 (Version None)
Quarter: 2012Q2

REPORT INFORMATION
  Report Type: 
  Country: None (occurrence: None)
  Receive Date: 20120423
  Receipt Date: 20120413
  Transmission Date: 20120825
  Serious: Yes (Hospitalization, Other)
  Sender: FDA-Public Use
  Company Number: 2012P1009334

PATIENT
  Age: 75 Year
  Sex: Male

DRUGS (7)
  1. JANUMET [Concomitant]
  2. ATORVASTATIN CALCIUM [Concomitant]
  3. PANTOPRAZOLE [Suspect]
     Indication: HELICOBACTER INFECTION
     Dosage: 40 MG;PO
     Route: 048
  4. LYSINE ASPIRIN [Concomitant]
  5. EXFORGE [Concomitant]
  6. ACEBUTOLOL [Concomitant]
  7. ALBENDAZOLE (NO PREF. NAME) [Suspect]
     Indication: TOXOCARIASIS
     Dosage: 800 MG;QD;PO
     Route: 048
     Dates: start: 20111221, end: 20120104

REACTIONS (4)
  - EOSINOPHILIA [None]
  - VOMITING [None]
  - TUBULOINTERSTITIAL NEPHRITIS [None]
  - HELICOBACTER INFECTION [None]
